FAERS Safety Report 5630054-6 (Version None)
Quarter: 2008Q1

REPORT INFORMATION
  Report Type: 
  Country: None (occurrence: None)
  Receive Date: 20080218
  Receipt Date: 20080212
  Transmission Date: 20080703
  Serious: Yes (Other)
  Sender: FDA-Public Use
  Company Number: PHEH2007US14097

PATIENT
  Age: 85 Year
  Sex: Female
  Weight: 67.573 kg

DRUGS (10)
  1. ZOMETA [Suspect]
     Indication: OSTEOPOROSIS
     Dosage: 4MG
     Route: 042
     Dates: start: 20071010
  2. SYNTHROID [Concomitant]
  3. LIPITOR [Concomitant]
  4. DYAZIDE [Concomitant]
  5. ULTRACET [Concomitant]
  6. PLAVIX [Concomitant]
  7. NEXIUM [Concomitant]
  8. TOPROL-XL [Concomitant]
  9. TYLENOL EXTRA-STRENGTH [Concomitant]
  10. NITROFURANTOIN [Concomitant]

REACTIONS (10)
  - ARTHRALGIA [None]
  - FEELING ABNORMAL [None]
  - JOINT SWELLING [None]
  - MUSCULOSKELETAL DISORDER [None]
  - MYALGIA [None]
  - PAIN [None]
  - PYREXIA [None]
  - RHEUMATOID ARTHRITIS [None]
  - RHEUMATOID FACTOR POSITIVE [None]
  - SYNOVITIS [None]
